FAERS Safety Report 18197931 (Version 1)
Quarter: 2020Q3

REPORT INFORMATION
  Report Type: Spontaneous
  Country: JP (occurrence: JP)
  Receive Date: 20200826
  Receipt Date: 20200826
  Transmission Date: 20201103
  Serious: Yes (Hospitalization)
  Sender: FDA-Public Use
  Company Number: NVSJ2020JP007965

PATIENT
  Sex: Male

DRUGS (2)
  1. VOLTAREN SUP [Suspect]
     Active Substance: DICLOFENAC SODIUM
     Indication: PRODUCT USED FOR UNKNOWN INDICATION
     Dosage: UNK
     Route: 054
     Dates: start: 20190220
  2. VOLTAREN SUP [Suspect]
     Active Substance: DICLOFENAC SODIUM
     Dosage: UNK
     Route: 054

REACTIONS (9)
  - Pyelitis [Unknown]
  - Blister [Unknown]
  - Dysuria [Unknown]
  - Pruritus [Unknown]
  - Faeces discoloured [Unknown]
  - Application site discolouration [Unknown]
  - Acne [Unknown]
  - Chromaturia [Unknown]
  - Pyrexia [Unknown]

NARRATIVE: CASE EVENT DATE: 20190310
